FAERS Safety Report 5688271-5 (Version None)
Quarter: 2008Q1

REPORT INFORMATION
  Report Type: 
  Country: None (occurrence: None)
  Receive Date: 20080328
  Receipt Date: 20080328
  Transmission Date: 20080703
  Serious: Yes (Life-Threatening)
  Sender: FDA-Public Use
  Company Number: None

PATIENT
  Age: 32 Year
  Sex: Female
  Weight: 78 kg

DRUGS (19)
  1. LEVOPHED [Suspect]
     Indication: HYPOTENSION
     Dosage: TITRATED TO BP   IV DRIP
     Route: 041
     Dates: start: 20080303, end: 20080304
  2. LEVOPHED [Suspect]
     Indication: SEPSIS
     Dosage: TITRATED TO BP   IV DRIP
     Route: 041
     Dates: start: 20080303, end: 20080304
  3. LEVOPHED [Suspect]
     Indication: HYPOTENSION
     Dosage: TITRATED TO BP   IV DRIP
     Route: 041
     Dates: start: 20080309, end: 20080311
  4. LEVOPHED [Suspect]
     Indication: SEPSIS
     Dosage: TITRATED TO BP   IV DRIP
     Route: 041
     Dates: start: 20080309, end: 20080311
  5. DOPAMINE HCL [Suspect]
     Indication: HYPOTENSION
     Dosage: TITRATED TO BP   IV DRIP
     Route: 041
     Dates: start: 20080210, end: 20080212
  6. ZOSYN [Concomitant]
  7. NPH INSULIN [Concomitant]
  8. NEPHROVITE [Concomitant]
  9. CUBICIN [Concomitant]
  10. FLAGYL [Concomitant]
  11. GENTAMICIN [Concomitant]
  12. LORTAB [Concomitant]
  13. PROTONIX [Concomitant]
  14. XENADERM [Concomitant]
  15. ARANESP [Concomitant]
  16. LACTOBACILLUS [Concomitant]
  17. FRAGMIN [Concomitant]
  18. FUNGIZONE [Concomitant]
  19. PREDNISONE [Concomitant]

REACTIONS (7)
  - COLECTOMY [None]
  - GANGRENE [None]
  - HYPOTENSION [None]
  - ILEOSTOMY [None]
  - ISCHAEMIA [None]
  - LEG AMPUTATION [None]
  - UNRESPONSIVE TO STIMULI [None]
